FAERS Safety Report 12242602 (Version 1)
Quarter: 2016Q2

REPORT INFORMATION
  Report Type: Spontaneous
  Country: GB (occurrence: GB)
  Receive Date: 20160406
  Receipt Date: 20160406
  Transmission Date: 20160815
  Serious: Yes (Hospitalization)
  Sender: FDA-Public Use
  Company Number: GB-PFIZER INC-2016188318

PATIENT
  Age: 85 Year

DRUGS (9)
  1. DOCUSATE [Concomitant]
     Active Substance: DOCUSATE
  2. CLOPIDOGREL [Concomitant]
     Active Substance: CLOPIDOGREL BISULFATE
  3. PARACETAMOL [Concomitant]
     Active Substance: ACETAMINOPHEN
  4. SIMVASTATIN. [Concomitant]
     Active Substance: SIMVASTATIN
  5. DALTEPARIN SODIUM [Suspect]
     Active Substance: DALTEPARIN SODIUM
     Dosage: UNK
     Dates: start: 20160312
  6. LANSOPRAZOLE. [Concomitant]
     Active Substance: LANSOPRAZOLE
  7. ATENOLOL. [Concomitant]
     Active Substance: ATENOLOL
  8. MIRTAZAPINE. [Concomitant]
     Active Substance: MIRTAZAPINE
  9. SENNA /00142201/ [Concomitant]
     Active Substance: SENNA LEAF

REACTIONS (1)
  - Hyperkalaemia [Recovered/Resolved]

NARRATIVE: CASE EVENT DATE: 20160314
